FAERS Safety Report 5355137-X (Version None)
Quarter: 2007Q2

REPORT INFORMATION
  Report Type: 
  Country: None (occurrence: None)
  Receive Date: 20070611
  Receipt Date: 20070508
  Transmission Date: 20071010
  Serious: Yes (Other)
  Sender: FDA-Public Use
  Company Number: WAES 0706ESP00013

PATIENT
  Age: 74 Year
  Sex: Male

DRUGS (2)
  1. COZAAR [Suspect]
     Dosage: PO
     Route: 048
  2. CLARITHROMYCIN [Suspect]

REACTIONS (3)
  - ALANINE AMINOTRANSFERASE INCREASED [None]
  - BLOOD BILIRUBIN INCREASED [None]
  - HEPATOCELLULAR DAMAGE [None]
